FAERS Safety Report 5653583-8 (Version None)
Quarter: 2008Q1

REPORT INFORMATION
  Report Type: 
  Country: None (occurrence: None)
  Receive Date: 20080306
  Receipt Date: 20080225
  Transmission Date: 20080703
  Serious: Yes (Hospitalization)
  Sender: FDA-Public Use
  Company Number: DE-JNJFOC-20080206506

PATIENT
  Sex: Female

DRUGS (5)
  1. DOLORMIN FUR KINDER 2% [Suspect]
     Route: 048
  2. DOLORMIN FUR KINDER 2% [Suspect]
     Indication: NASOPHARYNGITIS
     Route: 048
  3. MUCOSOLVAN [Suspect]
     Indication: NASOPHARYNGITIS
     Route: 048
  4. AMOXIPEN [Suspect]
     Indication: INFECTION
  5. BENURON [Suspect]
     Indication: PYREXIA

REACTIONS (1)
  - STEVENS-JOHNSON SYNDROME [None]
